FAERS Safety Report 9163260 (Version 1)
Quarter: 2013Q1

REPORT INFORMATION
  Report Type: Spontaneous
  Country: GR (occurrence: GR)
  Receive Date: 20130314
  Receipt Date: 20130314
  Transmission Date: 20140127
  Serious: Yes (Other)
  Sender: FDA-Public Use
  Company Number: GR-TEVA-390017ISR

PATIENT
  Age: 47 Year
  Sex: Male

DRUGS (8)
  1. FLUCONAZOLE [Suspect]
     Indication: MENINGITIS CRYPTOCOCCAL
     Dosage: 800 MG/DAY
     Route: 048
  2. AMPHOTERICIN B [Suspect]
     Indication: MENINGITIS CRYPTOCOCCAL
     Dosage: STANDARD DOSE
     Route: 042
  3. AMPHOTERICIN B [Suspect]
     Indication: MENINGITIS CRYPTOCOCCAL
     Route: 065
  4. FLUCYTOSINE [Concomitant]
     Indication: MENINGITIS CRYPTOCOCCAL
     Dosage: STANDARD DOSE
     Route: 048
  5. EMTRICITABINE, TENOFOVIR DISOPROXIL FUMARATE [Concomitant]
     Indication: HIV INFECTION
     Route: 065
  6. DARUNAVIR [Concomitant]
     Indication: HIV INFECTION
     Route: 065
  7. RITONAVIR [Concomitant]
     Indication: HIV INFECTION
     Route: 065
  8. ENFUVIRTIDE [Concomitant]
     Indication: HIV INFECTION
     Route: 065

REACTIONS (3)
  - Renal impairment [Unknown]
  - Nephropathy toxic [Unknown]
  - Hepatotoxicity [Unknown]
